FAERS Safety Report 15075174 (Version 1)
Quarter: 2018Q2

REPORT INFORMATION
  Report Type: Spontaneous
  Country: US (occurrence: US)
  Receive Date: 20180627
  Receipt Date: 20180627
  Transmission Date: 20180711
  Serious: Yes (Other)
  Sender: FDA-Public Use
  Company Number: US-SAOL THERAPEUTICS-2018SAO00267

PATIENT
  Age: 67 Year
  Sex: Male

DRUGS (6)
  1. MORPHINE [Suspect]
     Active Substance: MORPHINE
     Dosage: 0.0496 MG, \DAY
     Route: 037
     Dates: start: 20180109
  2. CLONIDINE. [Suspect]
     Active Substance: CLONIDINE
     Dosage: 35.977 ?G, \DAY
     Route: 037
     Dates: end: 20180109
  3. BACLOFEN. [Suspect]
     Active Substance: BACLOFEN
     Dosage: 0.496 ?G, \DAY
     Route: 037
     Dates: start: 20180109
  4. BACLOFEN. [Suspect]
     Active Substance: BACLOFEN
     Dosage: 35.977 ?G, \DAY
     Route: 037
     Dates: end: 20180109
  5. CLONIDINE. [Suspect]
     Active Substance: CLONIDINE
     Dosage: 0.496 ?G, \DAY
     Route: 037
     Dates: start: 20180109
  6. MORPHINE [Suspect]
     Active Substance: MORPHINE
     Dosage: 3.5977 MG, \DAY
     Route: 037
     Dates: end: 20180109

REACTIONS (3)
  - Pain [Unknown]
  - Influenza like illness [Unknown]
  - Device failure [Unknown]

NARRATIVE: CASE EVENT DATE: 20180108
